FAERS Safety Report 10762369 (Version 1)
Quarter: 2015Q1

REPORT INFORMATION
  Report Type: Spontaneous
  Country: US (occurrence: None)
  Receive Date: 20150129
  Receipt Date: 20150129
  Transmission Date: 20150721
  Serious: Yes (Hospitalization)
  Sender: FDA-Public Use
  Company Number: 111674

PATIENT
  Age: 56 Year
  Sex: Female
  Weight: 143 kg

DRUGS (9)
  1. METOPROLOL [Concomitant]
     Active Substance: METOPROLOL
  2. ASPIRIN (ACETYLSALICYLIC ACID) [Concomitant]
     Active Substance: ASPIRIN
  3. VITAMIN K [Concomitant]
     Active Substance: PHYTONADIONE
  4. LOSARTAN [Concomitant]
     Active Substance: LOSARTAN
  5. COUMADIN [Concomitant]
     Active Substance: WARFARIN SODIUM
  6. DILTIAZEM [Concomitant]
     Active Substance: DILTIAZEM
  7. MULTIVITAMINS (ASCORBIC ACID; ERGOCALCIFEROL; FOLIC ACID; NICOTINAMIDE; PANTHENOL; RETINOL; RIBOFLAVIN; THIAMINE HYDROCHLORIDE) [Concomitant]
  8. KEPPRA XR [Suspect]
     Active Substance: LEVETIRACETAM
     Indication: SEIZURE
     Dosage: 2 TABLET OF 750MG IN MORNING
  9. CRESTOR [Concomitant]
     Active Substance: ROSUVASTATIN CALCIUM

REACTIONS (3)
  - Seizure [None]
  - Overdose [None]
  - Inappropriate schedule of drug administration [None]

NARRATIVE: CASE EVENT DATE: 201401
